FAERS Safety Report 9833023 (Version 2)
Quarter: 2014Q1

REPORT INFORMATION
  Report Type: Spontaneous
  Country: JP (occurrence: JP)
  Receive Date: 20140121
  Receipt Date: 20140124
  Transmission Date: 20141002
  Serious: Yes (Hospitalization, Other)
  Sender: FDA-Public Use
  Company Number: JP-PFIZER INC-2014016096

PATIENT
  Age: 91 Year
  Sex: Male

DRUGS (2)
  1. CABASER [Suspect]
     Indication: PARKINSON^S DISEASE
     Dosage: 3 MG, DAILY
     Route: 048
  2. CABASER [Suspect]
     Dosage: 1.5 MG, DAILY
     Route: 048
     Dates: start: 20140122

REACTIONS (4)
  - Ileus [Unknown]
  - Pyrexia [Recovered/Resolved]
  - C-reactive protein increased [Recovered/Resolved]
  - Infection [Unknown]
